FAERS Safety Report 12705875 (Version 1)
Quarter: 2016Q3

REPORT INFORMATION
  Report Type: Spontaneous
  Country: US (occurrence: None)
  Receive Date: 20160831
  Receipt Date: 20160831
  Transmission Date: 20161109
  Serious: Yes (Other)
  Sender: FDA-Public Use
  Company Number: None

PATIENT
  Age: 17 Year
  Sex: Male
  Weight: 54.43 kg

DRUGS (1)
  1. TRAZODONE [Suspect]
     Active Substance: TRAZODONE HYDROCHLORIDE
     Indication: INSOMNIA
     Dosage: TRAZADONE 150 MG -  ONCE AT 150 MG - QHS - PO
     Route: 048
     Dates: start: 20160826

REACTIONS (1)
  - Hallucination [None]

NARRATIVE: CASE EVENT DATE: 20160827
